FAERS Safety Report 24539413 (Version 1)
Quarter: 2024Q4

REPORT INFORMATION
  Report Type: Spontaneous
  Country: US (occurrence: None)
  Receive Date: 20241022
  Receipt Date: 20241022
  Transmission Date: 20250115
  Serious: No
  Sender: Public
  Company Number: None

PATIENT
  Age: 75 Year
  Sex: Male
  Weight: 134 kg

DRUGS (1)
  1. CEFAZOLIN SODIUM [Suspect]
     Active Substance: CEFAZOLIN SODIUM
     Indication: Staphylococcal bacteraemia
     Dosage: FREQUENCY : TWICE A DAY;?
     Route: 042
     Dates: start: 20240501, end: 20240507

REACTIONS (1)
  - Cutaneous vasculitis [None]

NARRATIVE: CASE EVENT DATE: 20240507
